FAERS Safety Report 18208854 (Version 1)
Quarter: 2020Q3

REPORT INFORMATION
  Report Type: Spontaneous
  Country: NZ (occurrence: NZ)
  Receive Date: 20200828
  Receipt Date: 20200828
  Transmission Date: 20201103
  Serious: Yes (Death)
  Sender: FDA-Public Use
  Company Number: NZ-CELGENEUS-NZL-20200807171

PATIENT
  Sex: Male

DRUGS (4)
  1. LENALIDOMIDE [Suspect]
     Active Substance: LENALIDOMIDE
     Indication: OFF LABEL USE
  2. THALIDOMIDE [Suspect]
     Active Substance: THALIDOMIDE
     Indication: NEOPLASM MALIGNANT
     Dosage: 100 MILLIGRAM (DAILY AT NIGHT)
     Route: 048
  3. THALIDOMIDE [Suspect]
     Active Substance: THALIDOMIDE
     Indication: OFF LABEL USE
  4. LENALIDOMIDE [Suspect]
     Active Substance: LENALIDOMIDE
     Indication: NEOPLASM MALIGNANT
     Dosage: 10 MILLIGRAM
     Route: 048

REACTIONS (1)
  - Death [Fatal]
